FAERS Safety Report 8222414-4 (Version None)
Quarter: 2012Q1

REPORT INFORMATION
  Report Type: 
  Country: None (occurrence: None)
  Receive Date: 20120320
  Receipt Date: 20120312
  Transmission Date: 20120608
  Serious: Yes (Hospitalization)
  Sender: FDA-Public Use
  Company Number: US-BAYER-2011-080802

PATIENT
  Age: 22 Year
  Sex: Female
  Weight: 95.238 kg

DRUGS (8)
  1. YASMIN [Suspect]
     Indication: ACNE
     Dosage: UNK
     Dates: start: 20050101, end: 20060101
  2. LORTAB [Concomitant]
     Indication: PAIN
     Dosage: UNK
     Dates: start: 20110425
  3. YASMIN [Suspect]
     Indication: PREMENSTRUAL SYNDROME
  4. DROSPIRENONE AND ETHINYL ESTRADIOL [Suspect]
     Indication: PREMENSTRUAL SYNDROME
  5. NEXIUM [Concomitant]
     Indication: GASTROOESOPHAGEAL REFLUX DISEASE
     Dosage: UNK
     Dates: start: 20110422
  6. PHENERGAN [Concomitant]
     Indication: NAUSEA
     Dosage: UNK
     Dates: start: 20110424
  7. DROSPIRENONE AND ETHINYL ESTRADIOL [Suspect]
     Indication: ACNE
     Dosage: UNK
     Dates: start: 20100101
  8. TRAMADOL HCL [Concomitant]
     Indication: PAIN
     Dosage: 37.5 MG, PRN
     Dates: start: 20110424

REACTIONS (5)
  - CHOLELITHIASIS [None]
  - ANXIETY [None]
  - EMOTIONAL DISTRESS [None]
  - INJURY [None]
  - PAIN [None]
